FAERS Safety Report 5797799-9 (Version None)
Quarter: 2008Q3

REPORT INFORMATION
  Report Type: 
  Country: None (occurrence: None)
  Receive Date: 20080702
  Receipt Date: 20080619
  Transmission Date: 20090109
  Serious: Yes (Hospitalization)
  Sender: FDA-Public Use
  Company Number: DE-SANOFI-SYNTHELABO-F04200800052

PATIENT
  Sex: Female

DRUGS (6)
  1. TOREM [Concomitant]
     Indication: DRUG USE FOR UNKNOWN INDICATION
     Route: 048
     Dates: end: 20080423
  2. TOREM [Concomitant]
     Route: 048
     Dates: start: 20080424
  3. LEUCOVORIN CALCIUM [Suspect]
     Indication: GASTRIC CANCER
     Route: 041
     Dates: start: 20080423, end: 20080423
  4. FLUOROURACIL [Suspect]
     Indication: GASTRIC CANCER
     Route: 041
     Dates: start: 20080423, end: 20080423
  5. ELOXATIN [Suspect]
     Indication: GASTRIC CANCER
     Route: 041
     Dates: start: 20080423, end: 20080423
  6. DOCETAXEL [Suspect]
     Indication: GASTRIC CANCER
     Route: 041
     Dates: start: 20080423, end: 20080423

REACTIONS (8)
  - ASTHENIA [None]
  - ATRIAL FIBRILLATION [None]
  - CARDIAC FAILURE [None]
  - CHEST PAIN [None]
  - DIZZINESS [None]
  - DYSPNOEA [None]
  - FATIGUE [None]
  - PULMONARY OEDEMA [None]
